FAERS Safety Report 8726763 (Version 2)
Quarter: 2012Q4

REPORT INFORMATION
  Report Type: 
  Country: US (occurrence: US)
  Receive Date: 20120816
  Receipt Date: 20121009
  Transmission Date: 20130627
  Serious: No
  Sender: FDA-Public Use
  Company Number: PHEH2012US015893

PATIENT
  Age: 49 Year
  Sex: Female

DRUGS (11)
  1. GILENYA [Suspect]
     Indication: RELAPSING-REMITTING MULTIPLE SCLEROSIS
     Dosage: 0.5 mg, QD
     Route: 048
     Dates: start: 20120724
  2. HERBAL MEDICATIONS [Concomitant]
     Dosage: UNK UKN, UNK
  3. BUDEPRION [Concomitant]
     Dosage: 2 DF, daily
     Route: 048
     Dates: start: 20081216
  4. CALCIUM [Concomitant]
     Dosage: 600 mg, QD
     Route: 048
  5. LEXAPRO [Concomitant]
     Dosage: 20 mg, QD
     Route: 048
     Dates: start: 20060821
  6. MIRALAX [Concomitant]
     Dosage: UNK UKN, UNK
     Dates: start: 20090605
  7. MULTIVITAMINS AND IRON [Concomitant]
     Dosage: 1 DF, QD
     Route: 048
  8. NEXIUM [Concomitant]
     Dosage: 1 DF, BID
     Route: 048
     Dates: start: 20090205
  9. VITAMIN B12 [Concomitant]
     Dosage: 1 DF, QOD
     Route: 048
  10. VITAMIN D3 [Concomitant]
     Dosage: 1 DF, PRN
     Route: 048
  11. URSODIOL [Concomitant]
     Dosage: 300 mg, QD
     Route: 048

REACTIONS (2)
  - Heart sounds abnormal [Unknown]
  - Heart rate decreased [Unknown]
